FAERS Safety Report 18905543 (Version 5)
Quarter: 2021Q2

REPORT INFORMATION
  Report Type: Spontaneous
  Country: US (occurrence: US)
  Receive Date: 20210217
  Receipt Date: 20210517
  Transmission Date: 20210717
  Serious: Yes (Other)
  Sender: FDA-Public Use
  Company Number: US-PFIZER INC-2021141814

PATIENT
  Age: 75 Year

DRUGS (3)
  1. XALATAN [Suspect]
     Active Substance: LATANOPROST
     Indication: GLAUCOMA
     Dosage: UNK
  2. PREMARIN [Suspect]
     Active Substance: ESTROGENS, CONJUGATED
     Indication: HORMONE REPLACEMENT THERAPY
     Dosage: 1.25 MG, ALTERNATE DAY (ONE DAY AND THE NEXT DAY HALF OF THAT WHICH IS 0.625 MG)
  3. PREMARIN [Suspect]
     Active Substance: ESTROGENS, CONJUGATED
     Dosage: 0.625 MG, ALTERNATE DAY (ONE DAY AND THE NEXT DAY HALF OF THAT WHICH IS 0.625 MG)

REACTIONS (7)
  - Hypotension [Unknown]
  - Hypersensitivity [Unknown]
  - Memory impairment [Unknown]
  - Crying [Unknown]
  - Hypertension [Unknown]
  - Insomnia [Unknown]
  - Drug dependence [Unknown]
